FAERS Safety Report 12488128 (Version 1)
Quarter: 2016Q2

REPORT INFORMATION
  Report Type: Spontaneous
  Country: US (occurrence: US)
  Receive Date: 20160622
  Receipt Date: 20160622
  Transmission Date: 20160815
  Serious: No
  Sender: FDA-Public Use
  Company Number: US-PFIZER INC-2016284169

PATIENT
  Age: 55 Year
  Sex: Female

DRUGS (1)
  1. SUTENT [Suspect]
     Active Substance: SUNITINIB MALATE
     Indication: SOFT TISSUE SARCOMA
     Dosage: 50 MG, CYCLIC (1 CAPSULE ONCE DAILY FOR 4 WEEKS THEN OFF 2 WEEKS)
     Route: 048

REACTIONS (3)
  - Oedema [Unknown]
  - Product use issue [Unknown]
  - Hypertension [Unknown]
